FAERS Safety Report 7878101-5 (Version None)
Quarter: 2011Q4

REPORT INFORMATION
  Report Type: 
  Country: None (occurrence: None)
  Receive Date: 20111101
  Receipt Date: 20111020
  Transmission Date: 20120403
  Serious: No
  Sender: FDA-Public Use
  Company Number: US-BIOGENIDEC-2011BI038136

PATIENT
  Sex: Female

DRUGS (2)
  1. LORATADINE [Concomitant]
     Indication: PREMEDICATION
  2. TYSABRI [Suspect]
     Indication: MULTIPLE SCLEROSIS
     Route: 042
     Dates: start: 20090305

REACTIONS (6)
  - PERONEAL NERVE PALSY [None]
  - URINARY INCONTINENCE [None]
  - AMNESIA [None]
  - BALANCE DISORDER [None]
  - FALL [None]
  - FATIGUE [None]
